FAERS Safety Report 23163257 (Version 1)
Quarter: 2023Q4

REPORT INFORMATION
  Report Type: Spontaneous
  Country: JP (occurrence: JP)
  Receive Date: 20231109
  Receipt Date: 20231109
  Transmission Date: 20240110
  Serious: Yes (Other)
  Sender: FDA-Public Use
  Company Number: JP-BAXTER-2023BAX034466

PATIENT
  Age: 10 Year
  Sex: Female

DRUGS (1)
  1. REGUNEAL HCA [Suspect]
     Active Substance: CALCIUM CHLORIDE\DEXTROSE MONOHYDRATE\HYDROCHLORIC ACID\MAGNESIUM CHLORIDE\SODIUM BICARBONATE\SODIUM
     Indication: Renal failure
     Dosage: 2 (UNIT AND DOSING INTERVAL NOT REPORTED)
     Route: 033

REACTIONS (3)
  - Peritoneal cloudy effluent [Unknown]
  - Abdominal pain [Unknown]
  - Abdominal distension [Unknown]
